FAERS Safety Report 8016449-4 (Version None)
Quarter: 2011Q4

REPORT INFORMATION
  Report Type: 
  Country: None (occurrence: None)
  Receive Date: 20111230
  Receipt Date: 20111222
  Transmission Date: 20120403
  Serious: Yes (Death, Hospitalization, Other)
  Sender: FDA-Public Use
  Company Number: US-ABBOTT-11P-163-0723413-00

PATIENT
  Sex: Male
  Weight: 118.04 kg

DRUGS (6)
  1. HUMIRA [Suspect]
     Indication: PSORIATIC ARTHROPATHY
     Dates: start: 20110331, end: 20110331
  2. LORTAB [Concomitant]
     Indication: PAIN
  3. METHOTREXATE [Concomitant]
     Indication: ARTHRITIS
  4. ALLOPURINOL [Concomitant]
     Indication: GOUT
  5. NAPROXEN [Concomitant]
     Indication: ANTIINFLAMMATORY THERAPY
  6. FLEXERIL [Concomitant]
     Indication: MUSCLE RELAXANT THERAPY

REACTIONS (10)
  - SUDDEN DEATH [None]
  - NAUSEA [None]
  - PANCREATITIS NECROTISING [None]
  - MALAISE [None]
  - MULTI-ORGAN FAILURE [None]
  - SHOCK [None]
  - SKIN DISCOLOURATION [None]
  - ACUTE HEPATIC FAILURE [None]
  - ABDOMINAL PAIN UPPER [None]
  - ARTHRALGIA [None]
